FAERS Safety Report 17409421 (Version 2)
Quarter: 2020Q1

REPORT INFORMATION
  Report Type: Spontaneous
  Country: GB (occurrence: GB)
  Receive Date: 20200212
  Receipt Date: 20200324
  Transmission Date: 20200409
  Serious: No
  Sender: FDA-Public Use
  Company Number: GB-EMD SERONO-9143960

PATIENT
  Sex: Female

DRUGS (2)
  1. MAVENCLAD [Suspect]
     Active Substance: CLADRIBINE
     Dosage: FIRST YEAR SECOND WEEK THERAPY
     Route: 048
     Dates: start: 20200301, end: 20200305
  2. MAVENCLAD [Suspect]
     Active Substance: CLADRIBINE
     Indication: MULTIPLE SCLEROSIS
     Dosage: FIRST YEAR FIRST WEEK THERAPY: TWO TABLETS ON DAY 1 AND ONE TABLET ON DAYS 2 TO 5.
     Route: 048

REACTIONS (9)
  - Head discomfort [Recovering/Resolving]
  - Eye pruritus [Not Recovered/Not Resolved]
  - Sneezing [Recovering/Resolving]
  - Anxiety [Unknown]
  - Rhinorrhoea [Recovering/Resolving]
  - Pain [Unknown]
  - Cough [Unknown]
  - Discomfort [Unknown]
  - Malaise [Unknown]
